FAERS Safety Report 13554873 (Version 2)
Quarter: 2017Q2

REPORT INFORMATION
  Report Type: Spontaneous
  Country: PT (occurrence: PT)
  Receive Date: 20170517
  Receipt Date: 20170519
  Transmission Date: 20170830
  Serious: Yes (Death, Other)
  Sender: FDA-Public Use
  Company Number: PT-ASTELLAS-2017US019252

PATIENT
  Sex: Female

DRUGS (1)
  1. AMBISOME [Suspect]
     Active Substance: AMPHOTERICIN B
     Indication: GEOTRICHUM INFECTION
     Dosage: UNK UNK, UNKNOWN FREQ.
     Route: 065

REACTIONS (1)
  - Death [Fatal]
